FAERS Safety Report 9450139 (Version 1)
Quarter: 2013Q3

REPORT INFORMATION
  Report Type: Spontaneous
  Country: FR (occurrence: FR)
  Receive Date: 20130809
  Receipt Date: 20130809
  Transmission Date: 20140515
  Serious: Yes (Other)
  Sender: FDA-Public Use
  Company Number: FR-ROXANE LABORATORIES, INC.-2013-RO-01312RO

PATIENT
  Age: 39 Year
  Sex: Male

DRUGS (8)
  1. RISPERIDONE [Suspect]
     Indication: BIPOLAR I DISORDER
     Dosage: 1 MG
  2. RISPERIDONE [Suspect]
     Dosage: 2 MG
  3. RISPERIDONE [Suspect]
     Dosage: 4 MG
  4. RISPERIDONE [Suspect]
     Dosage: 6 MG
  5. LITHIUM CARBONATE [Suspect]
     Indication: BIPOLAR I DISORDER
     Dosage: 1200 MG
  6. BACLOFEN [Suspect]
     Indication: ALCOHOLISM
     Dosage: 20 MG
  7. BACLOFEN [Suspect]
     Dosage: 180 MG
  8. BACLOFEN [Suspect]
     Dosage: 240 MG

REACTIONS (4)
  - Hypertriglyceridaemia [Recovered/Resolved]
  - Toxicity to various agents [Unknown]
  - Weight increased [Unknown]
  - Hyponatraemia [Unknown]
